FAERS Safety Report 9206097 (Version 1)
Quarter: 2013Q1

REPORT INFORMATION
  Report Type: Spontaneous
  Country: US (occurrence: None)
  Receive Date: 20120709
  Receipt Date: 20120709
  Transmission Date: 20140127
  Serious: Yes (Hospitalization, Other)
  Sender: FDA-Public Use
  Company Number: PHHY2010US50644

PATIENT
  Age: 70 Year
  Sex: Female

DRUGS (6)
  1. GLEEVEC (IMATINIB) UNKNOWN [Suspect]
     Indication: CHRONIC MYELOID LEUKAEMIA
     Route: 048
     Dates: start: 20081106
  2. METFORMIN (METFORMIN) [Concomitant]
  3. ATENOLOL (ATENOLOL) [Concomitant]
  4. ASPIRIN (ACETYLSALICYLIC ACID) [Concomitant]
  5. VITAMIN D (ERGOCALCIFEROL) [Concomitant]
  6. HYDROCHLOROTHIAZID (HYDROCHLORTHIAZIDE) [Concomitant]

REACTIONS (5)
  - Pneumonia [None]
  - Pulmonary oedema [None]
  - Oedema peripheral [None]
  - Joint swelling [None]
  - Dyspnoea [None]
